FAERS Safety Report 16712769 (Version 2)
Quarter: 2019Q3

REPORT INFORMATION
  Report Type: Report from Study
  Country: US (occurrence: US)
  Receive Date: 20190817
  Receipt Date: 20190903
  Transmission Date: 20191004
  Serious: Yes (Hospitalization, Other)
  Sender: FDA-Public Use
  Company Number: US-ROCHE-1879528

PATIENT
  Age: 57 Year
  Sex: Male
  Weight: 84.8 kg

DRUGS (2)
  1. TRASTUZUMAB EMTANSINE [Suspect]
     Active Substance: ADO-TRASTUZUMAB EMTANSINE
     Indication: COLON CANCER
     Dosage: OVER 30-90 MINUTES ON DAY 1?CYCLE (21 DAYS) 2 STARTED ON 26/OCT/2016 WAS THE MOST RECENT DOSE (300 M
     Route: 042
     Dates: start: 20161005
  2. TYLENOL [Concomitant]
     Active Substance: ACETAMINOPHEN

REACTIONS (6)
  - Pyrexia [Recovered/Resolved with Sequelae]
  - Epistaxis [Recovered/Resolved with Sequelae]
  - Aspartate aminotransferase increased [Recovered/Resolved with Sequelae]
  - Platelet count decreased [Not Recovered/Not Resolved]
  - Blood bilirubin increased [Unknown]
  - Lung infection [Unknown]

NARRATIVE: CASE EVENT DATE: 20161005
